FAERS Safety Report 25683104 (Version 1)
Quarter: 2025Q3

REPORT INFORMATION
  Report Type: Spontaneous
  Country: US (occurrence: US)
  Receive Date: 20250814
  Receipt Date: 20250814
  Transmission Date: 20251020
  Serious: No
  Sender: ALKERMES
  Company Number: US-ALKERMES INC.-ALK-2025-002151

PATIENT
  Sex: Female

DRUGS (1)
  1. VIVITROL [Suspect]
     Active Substance: NALTREXONE
     Indication: Product used for unknown indication
     Route: 030

REACTIONS (4)
  - Disturbance in attention [Unknown]
  - Emotional distress [Unknown]
  - Psychological trauma [Unknown]
  - Depressed mood [Unknown]

NARRATIVE: CASE EVENT DATE: 20241206
